FAERS Safety Report 24466008 (Version 1)
Quarter: 2024Q4

REPORT INFORMATION
  Report Type: Report from Study
  Country: US (occurrence: US)
  Receive Date: 20241018
  Receipt Date: 20241018
  Transmission Date: 20250115
  Serious: No
  Sender: ROCHE
  Company Number: US-ROCHE-3538809

PATIENT
  Age: 62 Year
  Sex: Female

DRUGS (12)
  1. XOLAIR [Suspect]
     Active Substance: OMALIZUMAB
     Indication: Urticaria
     Dosage: ANTICIPATED DATE OF TREATMENT: 15/MAY/2024, LAST INJECTION DATE: 4/3/2024
     Route: 058
  2. XOLAIR [Suspect]
     Active Substance: OMALIZUMAB
     Route: 058
  3. BETAMETHASONE [Concomitant]
     Active Substance: BETAMETHASONE
  4. CLOBETASOL [Concomitant]
     Active Substance: CLOBETASOL
  5. CLOTRIMAZOLE [Concomitant]
     Active Substance: CLOTRIMAZOLE
  6. FLUCONAZOLE [Concomitant]
     Active Substance: FLUCONAZOLE
  7. KETOCONAZOLE [Concomitant]
     Active Substance: KETOCONAZOLE
  8. FOLIC ACID [Concomitant]
     Active Substance: FOLIC ACID
  9. METFORMIN [Concomitant]
     Active Substance: METFORMIN HYDROCHLORIDE
  10. METHOTREXATE [Concomitant]
     Active Substance: METHOTREXATE
  11. PREDNISONE [Concomitant]
     Active Substance: PREDNISONE
  12. SINGULAIR [Concomitant]
     Active Substance: MONTELUKAST SODIUM

REACTIONS (2)
  - Therapy non-responder [Unknown]
  - No adverse event [Unknown]
